FAERS Safety Report 8848535 (Version 1)
Quarter: 2012Q4

REPORT INFORMATION
  Report Type: 
  Country: US (occurrence: US)
  Receive Date: 20121018
  Receipt Date: 20121018
  Transmission Date: 20130627
  Serious: Yes (Other)
  Sender: FDA-Public Use
  Company Number: US-ASTRAZENECA-2012SE77548

PATIENT
  Age: 58 Year
  Sex: Female
  Weight: 91.2 kg

DRUGS (4)
  1. SEROQUEL XR [Suspect]
     Indication: BIPOLAR DISORDER
     Route: 048
     Dates: start: 1998
  2. ZYRTEC [Concomitant]
     Indication: SEASONAL ALLERGY
     Route: 048
  3. ALLEGRA [Concomitant]
     Indication: SEASONAL ALLERGY
  4. IBUPROFEN [Concomitant]

REACTIONS (5)
  - Fall [Unknown]
  - Head injury [Unknown]
  - Loss of consciousness [Unknown]
  - Memory impairment [Unknown]
  - Weight increased [Unknown]
